FAERS Safety Report 7374070-5 (Version None)
Quarter: 2011Q1

REPORT INFORMATION
  Report Type: 
  Country: None (occurrence: None)
  Receive Date: 20110317
  Receipt Date: 20110308
  Transmission Date: 20110831
  Serious: Yes (Hospitalization)
  Sender: FDA-Public Use
  Company Number: B0705578A

PATIENT
  Age: 32 Year
  Sex: Female

DRUGS (1)
  1. FLUTICASONE PROPIONATE [Suspect]
     Indication: EOSINOPHILIC OESOPHAGITIS
     Dosage: INHALED
     Route: 055

REACTIONS (1)
  - HERPES OESOPHAGITIS [None]
